FAERS Safety Report 7124019-5 (Version None)
Quarter: 2010Q4

REPORT INFORMATION
  Report Type: 
  Country: None (occurrence: None)
  Receive Date: 20101126
  Receipt Date: 20101115
  Transmission Date: 20110411
  Serious: No
  Sender: FDA-Public Use
  Company Number: US-PFIZER INC-2010150596

PATIENT
  Sex: Female

DRUGS (1)
  1. ESTRING [Suspect]

REACTIONS (1)
  - VULVOVAGINAL DISCOMFORT [None]
